FAERS Safety Report 5194577-9 (Version None)
Quarter: 2006Q4

REPORT INFORMATION
  Report Type: 
  Country: None (occurrence: None)
  Receive Date: 20061229
  Receipt Date: 20061218
  Transmission Date: 20070319
  Serious: Yes (Death, Hospitalization)
  Sender: FDA-Public Use
  Company Number: US-JNJFOC-20061105190

PATIENT
  Sex: Female

DRUGS (23)
  1. REMICADE [Suspect]
     Route: 042
  2. REMICADE [Suspect]
     Indication: CROHN'S DISEASE
     Route: 042
  3. COLCHICINE [Concomitant]
  4. FERROUS SULFATE TAB [Concomitant]
  5. ATENOLOL [Concomitant]
  6. HYDROCHLOROTHIAZIDE [Concomitant]
     Dosage: 75 MG 1/2 TAB DAILY
  7. ZOLOFT [Concomitant]
  8. STARLIX [Concomitant]
  9. ASPIRIN [Concomitant]
  10. THEO-DUR [Concomitant]
  11. NEXIUM [Concomitant]
  12. ALBUTEROL [Concomitant]
     Route: 055
  13. DETROL LA [Concomitant]
  14. CRESTOR [Concomitant]
  15. ADVAIR DISKUS 100/50 [Concomitant]
     Dosage: 500/50 BID
  16. PLAVIX [Concomitant]
  17. GENTEAL [Concomitant]
     Route: 031
  18. NITRO SL [Concomitant]
     Dosage: 1/50 PRN
  19. TRICOR [Concomitant]
  20. CANASA [Concomitant]
     Dosage: 1 GRAM SUP PRN
  21. FLAGYL [Concomitant]
  22. SYSTANE [Concomitant]
  23. SINUSAT [Concomitant]
     Dosage: 2/20

REACTIONS (4)
  - CROHN'S DISEASE [None]
  - HYPOTENSION [None]
  - METABOLIC ACIDOSIS [None]
  - SUPRAVENTRICULAR TACHYCARDIA [None]
